FAERS Safety Report 8904311 (Version 2)
Quarter: 2014Q4

REPORT INFORMATION
  Report Type: Spontaneous
  Country: DE (occurrence: DE)
  Receive Date: 20121112
  Receipt Date: 20141216
  Transmission Date: 20150529
  Serious: Yes (Other)
  Sender: FDA-Public Use
  Company Number: DE-GLAXOSMITHKLINE-B0843265B

PATIENT

DRUGS (11)
  1. BECLOMETASONE DIPROPIONATE [Suspect]
     Active Substance: BECLOMETHASONE DIPROPIONATE
     Indication: ASTHMA
     Route: 064
  2. QUETIAPINE [Suspect]
     Active Substance: QUETIAPINE
     Indication: PSYCHOTIC DISORDER
     Route: 064
  3. LEVONORGESTREL. [Suspect]
     Active Substance: LEVONORGESTREL
     Indication: CONTRACEPTION
     Route: 064
  4. MADOPAR [Suspect]
     Active Substance: BENSERAZIDE HYDROCHLORIDE\LEVODOPA
     Indication: RESTLESS LEGS SYNDROME
     Dosage: 25+6.5 MG/DAY
     Route: 064
  5. ETHINYLESTRADIOL [Suspect]
     Active Substance: ETHINYL ESTRADIOL
     Indication: CONTRACEPTION
     Route: 064
  6. RESTEX [Suspect]
     Active Substance: BENSERAZIDE
     Indication: RESTLESS LEGS SYNDROME
     Dosage: 100+2 MG/DAY
     Route: 064
  7. FORMOTEROL [Suspect]
     Active Substance: FORMOTEROL
     Indication: ASTHMA
     Route: 064
  8. DOXEPIN [Suspect]
     Active Substance: DOXEPIN
     Indication: PSYCHOTIC DISORDER
     Route: 064
  9. CROMOGLICATE [Suspect]
     Active Substance: CROMOLYN SODIUM
     Indication: ASTHMA
     Route: 064
  10. CITALOPRAM [Suspect]
     Active Substance: CITALOPRAM HYDROBROMIDE
     Indication: PSYCHOTIC DISORDER
     Route: 064
  11. REPROTEROL [Suspect]
     Active Substance: REPROTEROL HYDROCHLORIDE
     Indication: ASTHMA
     Route: 064

REACTIONS (4)
  - Foetal exposure during pregnancy [Unknown]
  - Respiratory distress [Unknown]
  - Premature delivery [Unknown]
  - Neonatal respiratory distress syndrome [None]
